FAERS Safety Report 10069809 (Version 1)
Quarter: 2014Q2

REPORT INFORMATION
  Report Type: Spontaneous
  Country: US (occurrence: None)
  Receive Date: 20140409
  Receipt Date: 20140409
  Transmission Date: 20141212
  Serious: Yes (Hospitalization)
  Sender: FDA-Public Use
  Company Number: None

PATIENT
  Age: 49 Year
  Sex: Female
  Weight: 59.88 kg

DRUGS (1)
  1. NIACIN [Suspect]
     Indication: BLOOD CHOLESTEROL DECREASED
     Route: 048
     Dates: start: 20140326, end: 20140329

REACTIONS (5)
  - Paraesthesia [None]
  - Hypoaesthesia [None]
  - Loss of consciousness [None]
  - Vomiting [None]
  - Dizziness [None]
